FAERS Safety Report 8019946-0 (Version None)
Quarter: 2011Q4

REPORT INFORMATION
  Report Type: 
  Country: None (occurrence: None)
  Receive Date: 20111228
  Receipt Date: 20111216
  Transmission Date: 20120403
  Serious: Yes (Other)
  Sender: FDA-Public Use
  Company Number: DSJ-2011-26834

PATIENT
  Age: 57 Year
  Sex: Male

DRUGS (6)
  1. AMOXICILLIN [Suspect]
     Indication: DENTAL IMPLANTATION
     Dosage: 500 MG, PER ORAL
     Route: 048
     Dates: start: 20111101
  2. BETAMETHASONE [Suspect]
     Indication: DENTAL IMPLANTATION
     Dosage: 2 MG, PER ORAL
     Route: 048
     Dates: start: 20111101
  3. ANTI-INFLAMMATORY MEDICINE FOR SPINE DISORDER (NAME UNKNOWN) [Concomitant]
  4. BENICAR HCT [Suspect]
     Indication: HYPERTENSION
     Dosage: 40/12.5 MG (1 IN 1 D), PER ORAL
     Route: 048
     Dates: start: 20110101
  5. CELECOXIB [Suspect]
     Indication: DENTAL IMPLANTATION
     Dosage: , PER ORAL
     Route: 048
     Dates: start: 20111101
  6. AMLODIPINE [Concomitant]

REACTIONS (4)
  - BLOOD PRESSURE SYSTOLIC INCREASED [None]
  - ANAL FISSURE [None]
  - DRUG INEFFECTIVE [None]
  - DENTAL IMPLANTATION [None]
